FAERS Safety Report 10656770 (Version 3)
Quarter: 2015Q2

REPORT INFORMATION
  Report Type: Spontaneous
  Country: ES (occurrence: ES)
  Receive Date: 20141217
  Receipt Date: 20150521
  Transmission Date: 20150821
  Serious: Yes (Other)
  Sender: FDA-Public Use
  Company Number: ES-AMGEN-ESPSP2014029109

PATIENT
  Age: 52 Year
  Sex: Female

DRUGS (13)
  1. XERISTAR [Concomitant]
     Active Substance: DULOXETINE HYDROCHLORIDE
     Indication: RHEUMATOID ARTHRITIS
     Dosage: 1 DF (60 MG), ONCE A DAY (ONE TABLET EVERY 24 HOURS)
  2. FERPLEX [Concomitant]
     Indication: ANAEMIA
     Dosage: 1 DF (40 MG), ONCE A DAY (EVERY 24 HOURS)
  3. METOJECT [Concomitant]
     Active Substance: METHOTREXATE SODIUM
     Indication: RHEUMATOID ARTHRITIS
     Dosage: 1 DF (15MG), WEEKLY (ONE INJECTION WEEKLY, ON FRIDAYS)
  4. LANTUS [Concomitant]
     Active Substance: INSULIN GLARGINE
     Dosage: 26 IU, ONCE A DAY (26 IU AT MIDDAY)
  5. ADIRO [Concomitant]
     Active Substance: ASPIRIN
     Indication: VISUAL IMPAIRMENT
     Dosage: ONE TABLET, EVERY 24 HOURS
     Dates: end: 201505
  6. ENBREL [Suspect]
     Active Substance: ETANERCEPT
     Dosage: 50 MG, WEEKLY ON TUESDAY
     Route: 058
  7. INSULIN RAPID [Concomitant]
     Active Substance: INSULIN NOS
     Indication: DIABETES MELLITUS
     Dosage: 3 IU AT MIDDAY AND 2 IU AT NIGHT
  8. NOLOTIL                            /06276702/ [Concomitant]
     Indication: PAIN
     Dosage: ONE TABLET, EVERY 6 HOURS
  9. PREDNISONE. [Concomitant]
     Active Substance: PREDNISONE
     Indication: RHEUMATOID ARTHRITIS
     Dosage: 10 MG, ONCE A DAY (EVERY 24 HOURS)
  10. FOLIC ACID. [Concomitant]
     Active Substance: FOLIC ACID
     Indication: RHEUMATOID ARTHRITIS
     Dosage: 5 MG, WEEKLY (EVERY SUNDAY)
  11. LANTUS [Concomitant]
     Active Substance: INSULIN GLARGINE
     Indication: TYPE 1 DIABETES MELLITUS
     Dosage: 28 IU, ONCE A DAY (28 IU EVERY 24 HOURS)
  12. ENBREL [Suspect]
     Active Substance: ETANERCEPT
     Indication: RHEUMATOID ARTHRITIS
     Dosage: 50 MG, WEEKLY ON TUESDAY
     Route: 058
     Dates: start: 20140301, end: 2015
  13. ENBREL [Suspect]
     Active Substance: ETANERCEPT
     Dosage: 50 MG, WEEKLY (ON TUESDAY)
     Route: 058

REACTIONS (8)
  - Drug ineffective [Unknown]
  - Swelling face [Not Recovered/Not Resolved]
  - Skin papilloma [Not Recovered/Not Resolved]
  - Blood glucose increased [Not Recovered/Not Resolved]
  - Abasia [Not Recovered/Not Resolved]
  - Joint swelling [Unknown]
  - Fatigue [Unknown]
  - Abdominal distension [Not Recovered/Not Resolved]

NARRATIVE: CASE EVENT DATE: 2014
